FAERS Safety Report 21770435 (Version 2)
Quarter: 2023Q2

REPORT INFORMATION
  Report Type: Report from Study
  Country: US (occurrence: US)
  Receive Date: 20221223
  Receipt Date: 20230406
  Transmission Date: 20230722
  Serious: No
  Sender: FDA-Public Use
  Company Number: US-ABBVIE-4207751

PATIENT
  Age: 65 Year
  Sex: Female
  Weight: 62.595 kg

DRUGS (1)
  1. HUMIRA [Suspect]
     Active Substance: ADALIMUMAB
     Indication: Crohn^s disease
     Dosage: CF
     Route: 058
     Dates: start: 20191125

REACTIONS (7)
  - Crohn^s disease [Not Recovered/Not Resolved]
  - Anal inflammation [Recovered/Resolved]
  - Muscle spasms [Recovered/Resolved]
  - Gastric disorder [Recovered/Resolved]
  - Anal haemorrhage [Recovered/Resolved]
  - Rectal polyp [Unknown]
  - Gastrointestinal inflammation [Unknown]

NARRATIVE: CASE EVENT DATE: 20221120
